FAERS Safety Report 16235245 (Version 2)
Quarter: 2019Q3

REPORT INFORMATION
  Report Type: Spontaneous
  Country: IT (occurrence: IT)
  Receive Date: 20190424
  Receipt Date: 20190703
  Transmission Date: 20191004
  Serious: Yes (Hospitalization)
  Sender: FDA-Public Use
  Company Number: IT-MYLANLABS-2019M1037540

PATIENT
  Age: 12 Month
  Sex: Male
  Weight: 11 kg

DRUGS (3)
  1. VIGABATRIN. [Concomitant]
     Active Substance: VIGABATRIN
     Indication: INFANTILE SPASMS
     Dosage: 1200 MILLIGRAM, QD
     Route: 048
  2. NITRAZEPAM [Concomitant]
     Active Substance: NITRAZEPAM
     Dosage: 2.5 MILLIGRAM, QD
     Route: 048
  3. TOPIRAMATE. [Suspect]
     Active Substance: TOPIRAMATE
     Indication: INFANTILE SPASMS
     Dosage: 20 MILLIGRAM, QD
     Route: 048

REACTIONS (5)
  - Relapsing fever [Recovering/Resolving]
  - Neutropenia [Recovering/Resolving]
  - Infantile spasms [Recovering/Resolving]
  - Condition aggravated [Recovering/Resolving]
  - Psychomotor retardation [Recovering/Resolving]

NARRATIVE: CASE EVENT DATE: 20180917
